FAERS Safety Report 22693118 (Version 2)
Quarter: 2024Q3

REPORT INFORMATION
  Report Type: Spontaneous
  Country: US (occurrence: US)
  Receive Date: 20230711
  Receipt Date: 20240722
  Transmission Date: 20241016
  Serious: No
  Sender: ASTELLAS
  Company Number: US-ASTELLAS-2023US005539

PATIENT
  Age: 89 Year
  Sex: Male

DRUGS (3)
  1. MYRBETRIQ [Suspect]
     Active Substance: MIRABEGRON
     Indication: Hypertonic bladder
     Dosage: 25 MG, ONCE DAILY (APPROXIMATELY 7-8 YEARS AGO AND TOOK IT FOR MONTHS)
     Route: 048
  2. HYOSCYAMINE [Concomitant]
     Active Substance: HYOSCYAMINE
     Indication: Irritable bowel syndrome
     Dosage: 0.125 MG, AS NEEDED
     Route: 048
  3. DIAZEPAM [Concomitant]
     Active Substance: DIAZEPAM
     Indication: Heart rate abnormal
     Dosage: 2 MG, AS NEEDED (STARTED MANY YEARS AGO)
     Route: 048

REACTIONS (1)
  - Drug ineffective [Unknown]
